FAERS Safety Report 9335703 (Version 3)
Quarter: 2014Q3

REPORT INFORMATION
  Report Type: Spontaneous
  Country: US (occurrence: US)
  Receive Date: 20130605
  Receipt Date: 20140911
  Transmission Date: 20150326
  Serious: Yes (Hospitalization, Other)
  Sender: FDA-Public Use
  Company Number: US-ASTRAZENECA-2009SE22670

PATIENT
  Age: 80 Year
  Sex: Male
  Weight: 79.8 kg

DRUGS (20)
  1. NIFEREX [Concomitant]
     Active Substance: IRON\POLYSACCHARIDES
     Dates: start: 20050604
  2. TRAMADOL [Concomitant]
     Active Substance: TRAMADOL
     Dates: start: 20090727
  3. NEXIUM [Suspect]
     Active Substance: ESOMEPRAZOLE MAGNESIUM
     Indication: GASTROOESOPHAGEAL REFLUX DISEASE
     Route: 048
     Dates: start: 2004
  4. LIPITOR [Concomitant]
     Active Substance: ATORVASTATIN CALCIUM
     Indication: BLOOD CHOLESTEROL INCREASED
  5. MUSINEX [Concomitant]
  6. SKELAXIN [Concomitant]
     Active Substance: METAXALONE
  7. SULINDAC. [Concomitant]
     Active Substance: SULINDAC
  8. MOBIC [Concomitant]
     Active Substance: MELOXICAM
     Route: 048
     Dates: start: 20041015
  9. METHYLPRED [Concomitant]
     Active Substance: METHYLPREDNISOLONE
     Route: 048
     Dates: start: 20050112
  10. RANITIDINE [Concomitant]
     Active Substance: RANITIDINE\RANITIDINE HYDROCHLORIDE
     Dates: start: 20091013
  11. NEXIUM [Suspect]
     Active Substance: ESOMEPRAZOLE MAGNESIUM
     Indication: GASTROOESOPHAGEAL REFLUX DISEASE
     Route: 048
     Dates: start: 2005, end: 2010
  12. IRON TABLET [Concomitant]
     Active Substance: IRON
  13. COREG [Concomitant]
     Active Substance: CARVEDILOL
     Indication: HYPERTENSION
  14. CLOMIPRAMINE [Concomitant]
     Active Substance: CLOMIPRAMINE
     Indication: ANTIDEPRESSANT THERAPY
  15. LOW DOSE ASPIRIN [Concomitant]
     Active Substance: ASPIRIN
     Indication: CARDIAC DISORDER
  16. ALTACE [Concomitant]
     Active Substance: RAMIPRIL
  17. SIMVASTATIN. [Concomitant]
     Active Substance: SIMVASTATIN
     Indication: BLOOD CHOLESTEROL ABNORMAL
  18. PREDNISONE. [Concomitant]
     Active Substance: PREDNISONE
     Dates: start: 20080529
  19. NEXIUM [Suspect]
     Active Substance: ESOMEPRAZOLE MAGNESIUM
     Indication: DYSPEPSIA
     Route: 048
     Dates: start: 2004
  20. NEXIUM [Suspect]
     Active Substance: ESOMEPRAZOLE MAGNESIUM
     Indication: DYSPEPSIA
     Route: 048
     Dates: start: 2005, end: 2010

REACTIONS (10)
  - Osteoporosis [Unknown]
  - Bone disorder [Unknown]
  - Intervertebral disc degeneration [Unknown]
  - Chest pain [Unknown]
  - Spinal osteoarthritis [Unknown]
  - Osteopenia [Unknown]
  - Femur fracture [Unknown]
  - Dyspepsia [Unknown]
  - Spinal compression fracture [Unknown]
  - Intervertebral disc protrusion [Unknown]

NARRATIVE: CASE EVENT DATE: 200811
